FAERS Safety Report 11855276 (Version 1)
Quarter: 2015Q4

REPORT INFORMATION
  Report Type: Spontaneous
  Country: AU (occurrence: AU)
  Receive Date: 20151221
  Receipt Date: 20151221
  Transmission Date: 20160305
  Serious: Yes (Other)
  Sender: FDA-Public Use
  Company Number: PHHY2015AU162114

PATIENT
  Age: 74 Year
  Sex: Male

DRUGS (7)
  1. EVEROLIMUS [Suspect]
     Active Substance: EVEROLIMUS
     Indication: BONE PAIN
     Route: 065
  2. CAPECITABINE. [Concomitant]
     Active Substance: CAPECITABINE
     Indication: PRODUCT USED FOR UNKNOWN INDICATION
     Route: 065
  3. SANDOSTATIN LAR DEPOT [Suspect]
     Active Substance: OCTREOTIDE ACETATE
     Dosage: 40 MG, QMO
     Route: 030
     Dates: start: 201409
  4. DEXAMETASON [Concomitant]
     Active Substance: DEXAMETHASONE
     Indication: PRODUCT USED FOR UNKNOWN INDICATION
     Dosage: 4 MG, QD (2 DAYS)
     Route: 048
  5. SANDOSTATIN LAR DEPOT [Suspect]
     Active Substance: OCTREOTIDE ACETATE
     Indication: NEUROENDOCRINE TUMOUR
     Dosage: 60 MG, QMO
     Route: 030
  6. EVEROLIMUS [Suspect]
     Active Substance: EVEROLIMUS
     Indication: LETHARGY
  7. GRANISETRON [Concomitant]
     Active Substance: GRANISETRON
     Indication: PRODUCT USED FOR UNKNOWN INDICATION
     Dosage: 2 MG, QD (2 DAYS)
     Route: 048

REACTIONS (13)
  - Malignant neoplasm progression [Unknown]
  - Bone pain [Recovering/Resolving]
  - Musculoskeletal pain [Not Recovered/Not Resolved]
  - Mucosal ulceration [Unknown]
  - Fat necrosis [Unknown]
  - Osteoarthritis [Unknown]
  - Neoplasm [Unknown]
  - Lethargy [Unknown]
  - Pain [Recovering/Resolving]
  - Tumour invasion [Unknown]
  - Product use issue [Unknown]
  - Bone lesion [Unknown]
  - Therapeutic response decreased [Unknown]

NARRATIVE: CASE EVENT DATE: 201504
